FAERS Safety Report 21207979 (Version 4)
Quarter: 2022Q3

REPORT INFORMATION
  Report Type: Spontaneous
  Country: US (occurrence: US)
  Receive Date: 20220812
  Receipt Date: 20220906
  Transmission Date: 20221027
  Serious: Yes (Other)
  Sender: FDA-Public Use
  Company Number: US-PFIZER INC-PV202200041138

PATIENT
  Age: 24 Year
  Sex: Male

DRUGS (2)
  1. EPINEPHRINE\LIDOCAINE HYDROCHLORIDE [Suspect]
     Active Substance: EPINEPHRINE\LIDOCAINE HYDROCHLORIDE
     Indication: Prophylaxis
     Dosage: 5 ML(5ML INTRANASALLY ONE DOSE)
     Route: 045
     Dates: start: 20220803
  2. PROPRANOLOL [Concomitant]
     Active Substance: PROPRANOLOL HYDROCHLORIDE
     Indication: Hypertension
     Dosage: UNK

REACTIONS (4)
  - Bradycardia [Unknown]
  - Hypertension [Unknown]
  - Cardiac disorder [Unknown]
  - Off label use [Unknown]

NARRATIVE: CASE EVENT DATE: 20220803
